FAERS Safety Report 5787051-X (Version None)
Quarter: 2008Q2

REPORT INFORMATION
  Report Type: 
  Country: None (occurrence: None)
  Receive Date: 20080625
  Receipt Date: 20080616
  Transmission Date: 20081010
  Serious: Yes (Hospitalization)
  Sender: FDA-Public Use
  Company Number: PHHO2008JP05335

PATIENT
  Sex: Male
  Weight: 56 kg

DRUGS (11)
  1. RAD 666 RAD+TAB+PTR [Suspect]
     Indication: RENAL TRANSPLANT
     Dosage: 1.5 MG DAILY
     Route: 048
     Dates: start: 20080306
  2. NEORAL [Suspect]
     Indication: RENAL TRANSPLANT
     Dosage: UNK
     Route: 048
     Dates: start: 20080306
  3. NEORAL [Suspect]
     Route: 048
     Dates: start: 20080329
  4. NEORAL [Suspect]
     Dosage: UNK
     Route: 048
     Dates: start: 20080521
  5. SIMULECT [Suspect]
     Dates: start: 20080301
  6. STEROIDS NOS [Suspect]
     Indication: RENAL TRANSPLANT
  7. RABEPRAZOLE SODIUM [Concomitant]
  8. MUCOSTA [Concomitant]
  9. NEGMIN GARGLE [Concomitant]
  10. NORVASC [Concomitant]
     Indication: HYPERTENSION
     Dosage: UNK
  11. LOCHOL [Concomitant]

REACTIONS (10)
  - ALANINE AMINOTRANSFERASE INCREASED [None]
  - BLOOD BETA-D-GLUCAN INCREASED [None]
  - BLOOD CREATININE INCREASED [None]
  - CYTOMEGALOVIRUS INFECTION [None]
  - FATIGUE [None]
  - HEADACHE [None]
  - HEPATIC FUNCTION ABNORMAL [None]
  - MUSCULOSKELETAL STIFFNESS [None]
  - PYREXIA [None]
  - TRACHEOBRONCHITIS [None]
